FAERS Safety Report 7158942-2 (Version None)
Quarter: 2010Q4

REPORT INFORMATION
  Report Type: 
  Country: None (occurrence: None)
  Receive Date: 20101214
  Receipt Date: 20100726
  Transmission Date: 20110411
  Serious: Yes (Other)
  Sender: FDA-Public Use
  Company Number: US-ASTRAZENECA-2010SE34731

PATIENT
  Age: 64 Year
  Sex: Male

DRUGS (3)
  1. CRESTOR [Suspect]
     Route: 048
  2. DIOVAN HCT [Concomitant]
     Dosage: 160/12.5
  3. FENOFIBRATE [Concomitant]

REACTIONS (1)
  - RHABDOMYOLYSIS [None]
